FAERS Safety Report 10525429 (Version 2)
Quarter: 2020Q3

REPORT INFORMATION
  Report Type: Report from Study
  Country: US (occurrence: US)
  Receive Date: 20141017
  Receipt Date: 20150202
  Transmission Date: 20201104
  Serious: Yes (Death)
  Sender: FDA-Public Use
  Company Number: US-JNJFOC-20141011217

PATIENT
  Age: 71 Year
  Sex: Male

DRUGS (17)
  1. IBRUTINIB [Suspect]
     Active Substance: IBRUTINIB
     Indication: CHRONIC LYMPHOCYTIC LEUKAEMIA
     Route: 048
     Dates: start: 20140826
  2. HYDROCODONE [Concomitant]
     Active Substance: HYDROCODONE
  3. INDOCIN [Concomitant]
     Active Substance: INDOMETHACIN
  4. GLIPIZIDE. [Concomitant]
     Active Substance: GLIPIZIDE
  5. CARVEDILOL. [Concomitant]
     Active Substance: CARVEDILOL
  6. LANTUS [Concomitant]
     Active Substance: INSULIN GLARGINE
  7. METFORMIN [Concomitant]
     Active Substance: METFORMIN HYDROCHLORIDE
  8. AMLODIPINE [Concomitant]
     Active Substance: AMLODIPINE BESYLATE
  9. IBRUTINIB [Suspect]
     Active Substance: IBRUTINIB
     Route: 048
  10. CALCIUM CARBONATE. [Concomitant]
     Active Substance: CALCIUM CARBONATE
  11. FLOMAX [Concomitant]
     Active Substance: TAMSULOSIN HYDROCHLORIDE
  12. LOPRESOR [Concomitant]
     Active Substance: METOPROLOL
  13. HUMALOG [Concomitant]
     Active Substance: INSULIN LISPRO
  14. TAMSULOSIN [Concomitant]
     Active Substance: TAMSULOSIN
  15. GABAPENTIN. [Concomitant]
     Active Substance: GABAPENTIN
  16. LOVASTATIN. [Concomitant]
     Active Substance: LOVASTATIN
  17. GLYBURIDE. [Concomitant]
     Active Substance: GLYBURIDE

REACTIONS (1)
  - Death [Fatal]

NARRATIVE: CASE EVENT DATE: 20140930
